FAERS Safety Report 11966212 (Version 1)
Quarter: 2016Q1

REPORT INFORMATION
  Report Type: Spontaneous
  Country: GB (occurrence: None)
  Receive Date: 20160126
  Receipt Date: 20160126
  Transmission Date: 20160526
  Serious: No
  Sender: FDA-Public Use
  Company Number: None

PATIENT
  Age: 32 Year
  Sex: Male
  Weight: 64 kg

DRUGS (2)
  1. CANESTEN CREAM [Suspect]
     Active Substance: CLOTRIMAZOLE
     Indication: TINEA CRURIS
     Dosage: 0.2 G, TWICE DAILY, APPLIED TO SURFACE, USUSALLY THE SKIN
     Dates: start: 20150817, end: 20151013
  2. MULTI-VITAMINS [Concomitant]

REACTIONS (1)
  - Erythema [None]

NARRATIVE: CASE EVENT DATE: 20151011
